FAERS Safety Report 6407152-2 (Version None)
Quarter: 2009Q4

REPORT INFORMATION
  Report Type: 
  Country: None (occurrence: None)
  Receive Date: 20091020
  Receipt Date: 20091013
  Transmission Date: 20100525
  Serious: No
  Sender: FDA-Public Use
  Company Number: US-ROXANE LABORATORIES, INC.-2009-RO-00852RO

PATIENT
  Sex: Female
  Weight: 72 kg

DRUGS (6)
  1. PREDNISONE TAB [Suspect]
     Indication: AUTOIMMUNE HEPATITIS
     Route: 048
     Dates: start: 20000101
  2. CELLCEPT [Suspect]
     Indication: AUTOIMMUNE HEPATITIS
     Dosage: 2000 MG
     Route: 048
     Dates: start: 20080901
  3. ENTOCORT EC [Concomitant]
     Indication: AUTOIMMUNE HEPATITIS
     Dosage: 6 MG
     Route: 048
     Dates: start: 20030901
  4. COZAAR [Concomitant]
     Indication: HYPERTENSION
     Dosage: 25 MG
     Route: 048
     Dates: start: 20070101
  5. ATENOLOL [Concomitant]
     Indication: HYPERTENSION
     Dosage: 25 MG
     Dates: start: 20030101
  6. OMEPRAZOLE [Concomitant]
     Dosage: 40 MG
     Route: 048
     Dates: start: 20060101

REACTIONS (4)
  - CHLOASMA [None]
  - PHOTOSENSITIVITY REACTION [None]
  - ROSACEA [None]
  - SKIN HYPERPIGMENTATION [None]
